FAERS Safety Report 10035180 (Version 2)
Quarter: 2014Q2

REPORT INFORMATION
  Report Type: Spontaneous
  Country: GB (occurrence: GB)
  Receive Date: 20140325
  Receipt Date: 20140425
  Transmission Date: 20141212
  Serious: Yes (Other)
  Sender: FDA-Public Use
  Company Number: GB-TEVA-470657USA

PATIENT
  Age: 64 Year
  Sex: Male

DRUGS (2)
  1. BENDAMUSTINE [Suspect]
     Indication: CHRONIC LYMPHOCYTIC LEUKAEMIA
     Dosage: PATIENT RECEIVED X 2 IN 2012 AND X 1 IN 2013
     Route: 042
  2. BENDAMUSTINE [Suspect]
     Route: 042

REACTIONS (2)
  - Aplasia pure red cell [Unknown]
  - Papilloma viral infection [Unknown]
